FAERS Safety Report 24175323 (Version 1)
Quarter: 2024Q3

REPORT INFORMATION
  Report Type: Spontaneous
  Country: PT (occurrence: PT)
  Receive Date: 20240805
  Receipt Date: 20240805
  Transmission Date: 20241016
  Serious: Yes (Other)
  Sender: SK LIFE SCIENCE
  Company Number: PT-ACRAF SpA-2024-035299

PATIENT

DRUGS (1)
  1. XCOPRI [Suspect]
     Active Substance: CENOBAMATE
     Indication: Epilepsy
     Dosage: UNKN (200 MG,1 D)
     Route: 048

REACTIONS (3)
  - Agitation [Unknown]
  - Intentional self-injury [Unknown]
  - Irritability [Unknown]
